FAERS Safety Report 11736823 (Version 1)
Quarter: 2015Q4

REPORT INFORMATION
  Report Type: Spontaneous
  Country: US (occurrence: US)
  Receive Date: 20151113
  Receipt Date: 20151113
  Transmission Date: 20160304
  Serious: No
  Sender: FDA-Public Use
  Company Number: US-JNJFOC-20150924857

PATIENT
  Age: 72 Year
  Sex: Female
  Weight: 52.16 kg

DRUGS (5)
  1. ATENOLOL. [Concomitant]
     Active Substance: ATENOLOL
     Indication: HYPERTENSION
     Dosage: SINCE 9 MONTH
     Route: 065
  2. IMODIUM MULTI-SYMPTOM RELIEF [Suspect]
     Active Substance: DIMETHICONE\LOPERAMIDE HYDROCHLORIDE
     Indication: DIARRHOEA
     Dosage: 1/2 - 1 CAPLET UP TO THREE TIMES A DAY
     Route: 048
  3. VITAMIN B [Concomitant]
     Active Substance: VITAMIN B
     Indication: NUTRITIONAL SUPPLEMENTATION
     Dosage: SINCE 1 MONTH
     Route: 065
  4. IMODIUM MULTI-SYMPTOM RELIEF [Suspect]
     Active Substance: DIMETHICONE\LOPERAMIDE HYDROCHLORIDE
     Route: 048
  5. VITAMIN D [Concomitant]
     Active Substance: CHOLECALCIFEROL
     Indication: NUTRITIONAL SUPPLEMENTATION
     Dosage: SINCE 15 YEARS
     Route: 065

REACTIONS (5)
  - Wrong technique in product usage process [Recovered/Resolved]
  - Dysphagia [Recovered/Resolved]
  - Incorrect dose administered [Recovered/Resolved]
  - Product formulation issue [Unknown]
  - Product quality issue [Recovered/Resolved]
